FAERS Safety Report 4337573-3 (Version None)
Quarter: 2004Q2

REPORT INFORMATION
  Report Type: 
  Country: None (occurrence: None)
  Receive Date: 20040413
  Receipt Date: 20040202
  Transmission Date: 20050107
  Serious: No
  Sender: FDA-Public Use
  Company Number: US-GLAXOSMITHKLINE-A0496080A

PATIENT
  Age: 46 Year
  Sex: Female

DRUGS (2)
  1. AGENERASE [Suspect]
     Indication: HIV INFECTION
     Dosage: 8TAB TWICE PER DAY
     Route: 048
  2. TRIZIVIR [Concomitant]

REACTIONS (3)
  - ABDOMINAL PAIN UPPER [None]
  - LIPOHYPERTROPHY [None]
  - NAUSEA [None]
